FAERS Safety Report 13268043 (Version 1)
Quarter: 2017Q1

REPORT INFORMATION
  Report Type: Spontaneous
  Country: US (occurrence: US)
  Receive Date: 20170224
  Receipt Date: 20170224
  Transmission Date: 20170428
  Serious: Yes (Life-Threatening, Hospitalization)
  Sender: FDA-Public Use
  Company Number: None

PATIENT
  Age: 51 Year
  Sex: Male
  Weight: 100.1 kg

DRUGS (1)
  1. CLOZAPINE, UNKNOWN [Suspect]
     Active Substance: CLOZAPINE
     Indication: SCHIZOPHRENIA
     Route: 048
     Dates: start: 20170221, end: 20170222

REACTIONS (6)
  - Product availability issue [None]
  - Drug dose titration not performed [None]
  - Syncope [None]
  - Acute respiratory failure [None]
  - Respiratory failure [None]
  - Therapy cessation [None]

NARRATIVE: CASE EVENT DATE: 20170222
